FAERS Safety Report 9775051 (Version 2)
Quarter: 2014Q2

REPORT INFORMATION
  Report Type: Spontaneous
  Country: US (occurrence: None)
  Receive Date: 20131218
  Receipt Date: 20140620
  Transmission Date: 20141212
  Serious: Yes (Other)
  Sender: FDA-Public Use
  Company Number: PIN-2013-00062

PATIENT
  Sex: 0

DRUGS (1)
  1. PORFIMER SODIUM [Suspect]
     Indication: BARRETT^S OESOPHAGUS

REACTIONS (1)
  - Oesophageal stenosis [None]
